FAERS Safety Report 4851227-6 (Version None)
Quarter: 2005Q4

REPORT INFORMATION
  Report Type: 
  Country: None (occurrence: None)
  Receive Date: 20051208
  Receipt Date: 20051130
  Transmission Date: 20060501
  Serious: Yes (Other)
  Sender: FDA-Public Use
  Company Number: 2005PV003531

PATIENT
  Sex: Female
  Weight: 103.6469 kg

DRUGS (12)
  1. BYETTA [Suspect]
     Indication: DIABETES MELLITUS NON-INSULIN-DEPENDENT
     Dosage: 5 MCG;BID
     Dates: start: 20050101, end: 20050101
  2. LANTUS [Concomitant]
  3. AMARYL [Concomitant]
  4. GLUCOPHAGE [Concomitant]
  5. ACTOS [Concomitant]
  6. DYAZIDE [Concomitant]
  7. ACCUPRIL [Concomitant]
  8. PREMARIN [Concomitant]
  9. PROZAC [Concomitant]
  10. ATENOLOL [Concomitant]
  11. LIPITOR [Concomitant]
  12. SYNTHROID [Concomitant]

REACTIONS (3)
  - DYSKINESIA [None]
  - HYPOAESTHESIA [None]
  - MONOPLEGIA [None]
